FAERS Safety Report 5650913-8 (Version None)
Quarter: 2008Q1

REPORT INFORMATION
  Report Type: 
  Country: None (occurrence: None)
  Receive Date: 20080305
  Receipt Date: 20080227
  Transmission Date: 20080703
  Serious: Yes (Life-Threatening, Hospitalization)
  Sender: FDA-Public Use
  Company Number: PHHY2008JP00514

PATIENT
  Age: 82 Year
  Sex: Female

DRUGS (2)
  1. DIOVAN [Suspect]
     Indication: HYPERTENSION
     Dosage: 80 MG, QD
     Route: 048
     Dates: start: 20071221, end: 20071224
  2. DIOVAN [Suspect]
     Dosage: 40 MG (HALF TABLET OF 80 MG)
     Route: 048
     Dates: start: 20071225, end: 20071229

REACTIONS (4)
  - ASTHENIA [None]
  - ENTEROCOLITIS [None]
  - PLATELET COUNT DECREASED [None]
  - VOMITING [None]
